FAERS Safety Report 8610733-9 (Version None)
Quarter: 2012Q3

REPORT INFORMATION
  Report Type: 
  Country: None (occurrence: None)
  Receive Date: 20120822
  Receipt Date: 20120817
  Transmission Date: 20120928
  Serious: Yes (Death, Hospitalization, Other)
  Sender: FDA-Public Use
  Company Number: KR-BAYER-2012-070696

PATIENT
  Age: 58 Year
  Sex: Female
  Weight: 37 kg

DRUGS (21)
  1. ENOXAPARIN [Concomitant]
     Indication: PULMONARY EMBOLISM
     Dosage: UNK
     Dates: start: 20120308, end: 20120416
  2. LEVOFLOXACIN [Concomitant]
     Indication: INFECTION
     Dosage: UNK
     Dates: start: 20120411, end: 20120414
  3. NYSTATIN [Concomitant]
     Indication: INFECTION
     Dosage: UNK
     Dates: start: 20120411, end: 20120424
  4. NYSTATIN [Concomitant]
     Dosage: UNK
     Dates: start: 20120502, end: 20120510
  5. CAPECITABINE [Suspect]
     Indication: GASTRIC CANCER
     Dosage: 2900 MG, QD
     Dates: start: 20120308, end: 20120322
  6. NEXAVAR [Suspect]
     Indication: GASTRIC CANCER
     Dosage: 400 MG, BID
     Dates: start: 20120630, end: 20120714
  7. ENOXAPARIN [Concomitant]
     Dosage: UNK
     Dates: start: 20120422, end: 20120509
  8. ENOXAPARIN [Concomitant]
     Dosage: UNK
     Dates: start: 20120802, end: 20120803
  9. PIPERACILLIN/TAZOBACTAM [Concomitant]
     Indication: INFECTION
     Dosage: UNK
     Dates: start: 20120411, end: 20120414
  10. BROMHEXIN [Concomitant]
     Indication: PNEUMONIA
     Dosage: UNK
     Dates: start: 20120419, end: 20120502
  11. CISPLATIN [Suspect]
     Dosage: 118 MG
     Dates: start: 20120328, end: 20120328
  12. CEFTRIAXONE [Concomitant]
     Dosage: UNK
     Dates: start: 20120411, end: 20120411
  13. AMBROXOL [Concomitant]
     Indication: PNEUMONIA
     Dosage: UNK
     Dates: start: 20120414, end: 20120418
  14. CAPECITABINE [Suspect]
     Dosage: 2900 MG, QD
     Dates: start: 20120328, end: 20120409
  15. MEROPENEM [Concomitant]
     Indication: INFECTION
     Dosage: UNK
     Dates: start: 20120415, end: 20120420
  16. MOXIFLOXACIN [Concomitant]
     Indication: INFECTION
     Dosage: UNK
     Dates: start: 20120420, end: 20120510
  17. AZITHROMYCIN [Concomitant]
     Dosage: UNK
     Dates: start: 20120411, end: 20120411
  18. CISPLATIN [Suspect]
     Indication: GASTRIC CANCER
     Dosage: 118 MG
     Dates: start: 20120308, end: 20120308
  19. CEFTRIAXONE [Concomitant]
     Indication: INFECTION
     Dosage: UNK
     Dates: start: 20120410, end: 20120411
  20. ACETYLCYSTEINE [Concomitant]
     Indication: PNEUMONIA
     Dosage: UNK
     Dates: start: 20120415, end: 20120421
  21. AZITHROMYCIN [Concomitant]
     Indication: INFECTION
     Dosage: UNK
     Dates: start: 20120410, end: 20120411

REACTIONS (2)
  - FANCONI SYNDROME [None]
  - LUNG INFECTION [None]
